FAERS Safety Report 10203523 (Version 3)
Quarter: 2014Q2

REPORT INFORMATION
  Report Type: Spontaneous
  Country: US (occurrence: None)
  Receive Date: 20140523
  Receipt Date: 20140623
  Transmission Date: 20141212
  Serious: Yes (Hospitalization)
  Sender: FDA-Public Use
  Company Number: 2014-US-006015

PATIENT
  Age: 62 Year
  Sex: Female
  Weight: 40.8 kg

DRUGS (3)
  1. XYREM [Suspect]
     Indication: FIBROMYALGIA
     Route: 048
     Dates: start: 200311, end: 2003
  2. XYREM [Suspect]
     Indication: SLEEP DISORDER
     Route: 048
     Dates: start: 200311, end: 2003
  3. XYREM [Suspect]
     Indication: INSOMNIA
     Route: 048
     Dates: start: 200311, end: 2003

REACTIONS (8)
  - Subdural haematoma [None]
  - Fall [None]
  - Convulsion [None]
  - Confusional state [None]
  - Weight decreased [None]
  - Decreased appetite [None]
  - Bedridden [None]
  - Off label use [None]
